FAERS Safety Report 5771769-9 (Version None)
Quarter: 2008Q2

REPORT INFORMATION
  Report Type: 
  Country: None (occurrence: None)
  Receive Date: 20080613
  Receipt Date: 20080604
  Transmission Date: 20081010
  Serious: Yes (Hospitalization)
  Sender: FDA-Public Use
  Company Number: US-ROCHE-547848

PATIENT
  Sex: Female
  Weight: 64.9 kg

DRUGS (6)
  1. BONIVA [Suspect]
     Indication: DRUG USE FOR UNKNOWN INDICATION
     Route: 048
     Dates: start: 20080105, end: 20080201
  2. VITAMINS NOS [Concomitant]
  3. FISH OIL [Concomitant]
  4. FLEXERIL [Concomitant]
  5. VICODIN [Concomitant]
  6. VICODIN [Concomitant]

REACTIONS (8)
  - ASTHENIA [None]
  - ATRIAL FIBRILLATION [None]
  - BACK INJURY [None]
  - COMPRESSION FRACTURE [None]
  - CORONARY ARTERY DISEASE [None]
  - DEHYDRATION [None]
  - NAUSEA [None]
  - PALPITATIONS [None]
